FAERS Safety Report 4414478-0 (Version None)
Quarter: 2004Q3

REPORT INFORMATION
  Report Type: 
  Country: None (occurrence: None)
  Receive Date: 20040702
  Receipt Date: 20040226
  Transmission Date: 20050211
  Serious: Yes (Hospitalization)
  Sender: FDA-Public Use
  Company Number: 360287

PATIENT
  Sex: Female

DRUGS (2)
  1. KLONOPIN [Suspect]
     Dosage: ORAL
     Route: 048
     Dates: start: 19930615
  2. VALIUM [Suspect]

REACTIONS (5)
  - CRYING [None]
  - DEPRESSION [None]
  - DRUG DEPENDENCE [None]
  - DYSARTHRIA [None]
  - GAIT DISTURBANCE [None]
